FAERS Safety Report 4589689-4 (Version None)
Quarter: 2005Q1

REPORT INFORMATION
  Report Type: 
  Country: None (occurrence: None)
  Receive Date: 20050217
  Receipt Date: 20050202
  Transmission Date: 20050727
  Serious: Yes (Hospitalization)
  Sender: FDA-Public Use
  Company Number: 2005AP00744

PATIENT
  Age: 76 Year
  Sex: Male

DRUGS (4)
  1. OMEPRAL [Suspect]
  2. SIMVASTATIN [Suspect]
  3. WARFARIN [Suspect]
  4. ASPIRIN [Concomitant]

REACTIONS (12)
  - ABASIA [None]
  - ANOREXIA [None]
  - ASTHENIA [None]
  - DRUG INTERACTION [None]
  - HEPATIC STEATOSIS [None]
  - HYPOAESTHESIA [None]
  - MYALGIA [None]
  - MYOPATHY [None]
  - PAIN IN EXTREMITY [None]
  - RENAL CYST [None]
  - RENAL DISORDER [None]
  - SPINAL OSTEOARTHRITIS [None]
